FAERS Safety Report 25644049 (Version 1)
Quarter: 2025Q3

REPORT INFORMATION
  Report Type: Spontaneous
  Country: US (occurrence: None)
  Receive Date: 20250802
  Receipt Date: 20250802
  Transmission Date: 20251021
  Serious: Yes (Hospitalization, Other)
  Sender: FDA-CTU
  Company Number: None

PATIENT
  Age: 68 Year
  Sex: Female
  Weight: 60 kg

DRUGS (1)
  1. RETATRUTIDE [Suspect]
     Active Substance: RETATRUTIDE
     Indication: Obesity
     Route: 058
     Dates: start: 20250709, end: 20250730

REACTIONS (4)
  - Suspected counterfeit product [None]
  - Intentional product misuse [None]
  - Diabetic ketoacidosis [None]
  - Metabolic acidosis [None]

NARRATIVE: CASE EVENT DATE: 20250802
